FAERS Safety Report 5912294-1 (Version None)
Quarter: 2008Q4

REPORT INFORMATION
  Report Type: 
  Country: None (occurrence: None)
  Receive Date: 20081008
  Receipt Date: 20080926
  Transmission Date: 20090506
  Serious: Yes (Other)
  Sender: FDA-Public Use
  Company Number: BR-ROCHE-588860

PATIENT
  Age: 17 Year
  Sex: Male
  Weight: 68 kg

DRUGS (2)
  1. ROACUTAN [Suspect]
     Indication: ACNE
     Dosage: STRENGTH:20MG
     Route: 048
     Dates: start: 20080601, end: 20080601
  2. ROACUTAN [Suspect]
     Dosage: STRENGTH:10MG
     Route: 048
     Dates: start: 20080701, end: 20080922

REACTIONS (1)
  - GLAUCOMA [None]
